FAERS Safety Report 7624624-3 (Version None)
Quarter: 2011Q3

REPORT INFORMATION
  Report Type: 
  Country: None (occurrence: None)
  Receive Date: 20110720
  Receipt Date: 20110715
  Transmission Date: 20111222
  Serious: Yes (Hospitalization)
  Sender: FDA-Public Use
  Company Number: BE-PFIZER INC-2011023890

PATIENT
  Age: 40 Year
  Sex: Male

DRUGS (9)
  1. SUTENT [Suspect]
     Indication: ANGIOSARCOMA
     Dosage: 50 MG, 1X/DAY
     Route: 048
     Dates: start: 20100712
  2. PRIMPERAN TAB [Concomitant]
     Dosage: 20 MG, 2X/DAY
     Route: 054
  3. MORPHINE [Suspect]
     Indication: PAIN
     Dosage: 10 MG, UNK
     Route: 048
     Dates: start: 20100819
  4. DURAGESIC-12 [Suspect]
     Indication: PAIN
     Dosage: 50 UG, AS NEEDED
     Route: 062
     Dates: start: 20100201, end: 20100902
  5. TRAMADOL HCL [Suspect]
     Indication: PAIN
     Dosage: 100 MG, UNK
     Route: 048
     Dates: start: 20100823
  6. TRAZOLAN [Concomitant]
     Dosage: 100 MG, 1X/DAY
  7. ZANTAC [Concomitant]
     Dosage: 150 MG, 1X/DAY
  8. XANAX [Concomitant]
     Dosage: 0.5 MG, 2X/DAY
  9. MOVIPREP [Concomitant]
     Dosage: UNK

REACTIONS (6)
  - AGITATION [None]
  - CONSTIPATION [None]
  - VOMITING [None]
  - ANXIETY [None]
  - NAUSEA [None]
  - OVERDOSE [None]
